FAERS Safety Report 14675077 (Version 3)
Quarter: 2018Q2

REPORT INFORMATION
  Report Type: Spontaneous
  Country: TW (occurrence: TW)
  Receive Date: 20180323
  Receipt Date: 20180427
  Transmission Date: 20180711
  Serious: Yes (Death, Hospitalization, Other)
  Sender: FDA-Public Use
  Company Number: TW-GILEAD-2018-0327824

PATIENT
  Age: 80 Year
  Sex: Female

DRUGS (15)
  1. NADIS                              /00032601/ [Concomitant]
     Dosage: UNK
     Dates: start: 20180301
  2. SILIMA [Concomitant]
     Dosage: UNK
     Dates: start: 20180226
  3. SORDUR [Concomitant]
     Dosage: UNK
     Dates: start: 20180301
  4. DOMPER                             /00498201/ [Concomitant]
  5. LACTULOSE. [Concomitant]
     Active Substance: LACTULOSE
     Dosage: UNK
     Dates: start: 20180226
  6. SOVALDI [Suspect]
     Active Substance: SOFOSBUVIR
     Indication: CHRONIC HEPATITIS C
     Dosage: UNK
     Route: 065
     Dates: start: 20180221, end: 20180306
  7. LODITON [Concomitant]
     Dosage: UNK
     Dates: start: 20180301
  8. SHYYLOUH [Concomitant]
     Dosage: UNK
     Dates: start: 20180226
  9. DEXILANT [Concomitant]
     Active Substance: DEXLANSOPRAZOLE
     Dosage: UNK
     Dates: start: 20180226
  10. ONGLYZA [Concomitant]
     Active Substance: SAXAGLIPTIN HYDROCHLORIDE
     Dosage: UNK
     Dates: start: 20180301
  11. ATIVAN [Concomitant]
     Active Substance: LORAZEPAM
     Dosage: UNK
     Dates: start: 20180226
  12. RIBAVIRIN. [Suspect]
     Active Substance: RIBAVIRIN
     Indication: CHRONIC HEPATITIS C
     Dosage: UNK
     Route: 065
     Dates: start: 20180221, end: 20180306
  13. THEOLIN [Concomitant]
     Dosage: UNK
     Dates: start: 20180301
  14. KINZOLAM [Concomitant]
     Active Substance: ESTAZOLAM
     Dosage: UNK
     Dates: start: 20180301
  15. CARVEDIOL [Concomitant]
     Active Substance: CARVEDILOL
     Dosage: UNK
     Dates: start: 20180226

REACTIONS (7)
  - Hepatic failure [Fatal]
  - Oesophageal varices haemorrhage [Unknown]
  - Abdominal discomfort [Fatal]
  - Decreased appetite [Unknown]
  - Altered state of consciousness [Fatal]
  - Diarrhoea [Unknown]
  - Jaundice [Unknown]

NARRATIVE: CASE EVENT DATE: 20180306
